FAERS Safety Report 6443896-4 (Version None)
Quarter: 2009Q4

REPORT INFORMATION
  Report Type: 
  Country: None (occurrence: None)
  Receive Date: 20091113
  Receipt Date: 20091030
  Transmission Date: 20100525
  Serious: Yes (Other)
  Sender: FDA-Public Use
  Company Number: DSM-2009-01662

PATIENT
  Age: 34 Year
  Sex: Male

DRUGS (4)
  1. OLMESARTAN MEDOXOMIL [Suspect]
     Indication: DRUG USE FOR UNKNOWN INDICATION
     Dosage: 20 MG (20 MG, 1 IN 1 D), ORAL
     Route: 048
     Dates: start: 20090101
  2. BISOPROLOL MYLAN (BISOPROLOL) (10 MILLIGRAM) (BISOPROLOL) [Suspect]
     Indication: DRUG USE FOR UNKNOWN INDICATION
     Dosage: (10 MG, ONCE), ORAL
     Route: 048
     Dates: start: 20090922, end: 20090922
  3. IXPRIM (PARACETAMOL) (TABLET) (PARACETAMOL) [Concomitant]
  4. BIPROFENID (KETOPROFEN) (150 MILLIGRAM, TABLET) (KETOPROFEN) [Concomitant]

REACTIONS (6)
  - BRADYCARDIA [None]
  - DRUG DISPENSING ERROR [None]
  - HYPOTENSION [None]
  - MALAISE [None]
  - SOMNOLENCE [None]
  - WRONG DRUG ADMINISTERED [None]
